FAERS Safety Report 14694441 (Version 1)
Quarter: 2018Q1

REPORT INFORMATION
  Report Type: Spontaneous
  Country: US (occurrence: US)
  Receive Date: 20180328
  Receipt Date: 20180328
  Transmission Date: 20180509
  Serious: No
  Sender: FDA-Public Use
  Company Number: None

PATIENT
  Age: 74 Year
  Sex: Male

DRUGS (4)
  1. PROBIOTIC [Concomitant]
     Active Substance: PROBIOTICS NOS
  2. LONSURF [Suspect]
     Active Substance: TIPIRACIL HYDROCHLORIDE\TRIFLURIDINE
     Indication: LUNG NEOPLASM MALIGNANT
     Route: 048
     Dates: start: 20180222
  3. VITAMIN B-6 [Concomitant]
     Active Substance: PYRIDOXINE
  4. HYDROCODON-APAP [Concomitant]

REACTIONS (2)
  - Intestinal perforation [None]
  - Gallbladder perforation [None]

NARRATIVE: CASE EVENT DATE: 20180327
